FAERS Safety Report 8451753 (Version 3)
Quarter: 2014Q2

REPORT INFORMATION
  Report Type: Spontaneous
  Country: US (occurrence: US)
  Receive Date: 20120309
  Receipt Date: 20140426
  Transmission Date: 20141212
  Serious: Yes (Other)
  Sender: FDA-Public Use
  Company Number: US-ROCHE-1020272

PATIENT
  Age: 17 Year
  Sex: Male
  Weight: 97.61 kg

DRUGS (2)
  1. ACCUTANE [Suspect]
     Indication: ACNE
     Route: 065
     Dates: start: 199511
  2. ACCUTANE [Suspect]
     Route: 065
     Dates: start: 199602, end: 199607

REACTIONS (10)
  - Crohn^s disease [Unknown]
  - Emotional distress [Unknown]
  - Inflammatory bowel disease [Unknown]
  - Large intestine polyp [Unknown]
  - Dry skin [Unknown]
  - Acne [Unknown]
  - Chapped lips [Unknown]
  - Dry eye [Unknown]
  - Episcleritis [Unknown]
  - Blood triglycerides increased [Unknown]
